FAERS Safety Report 15814720 (Version 7)
Quarter: 2019Q2

REPORT INFORMATION
  Report Type: Spontaneous
  Country: US (occurrence: US)
  Receive Date: 20190111
  Receipt Date: 20190621
  Transmission Date: 20190711
  Serious: Yes (Hospitalization)
  Sender: FDA-Public Use
  Company Number: US-ACTELION-A-US2017-161298

PATIENT
  Age: 52 Year
  Sex: Female
  Weight: 44.44 kg

DRUGS (8)
  1. VELETRI [Suspect]
     Active Substance: EPOPROSTENOL
     Indication: PULMONARY HYPERTENSION
     Dosage: 25 NG/KG, PER MIN
     Route: 042
  2. VELETRI [Suspect]
     Active Substance: EPOPROSTENOL
     Dosage: 48.2 NG/KG, PER MIN
     Route: 042
  3. VELETRI [Suspect]
     Active Substance: EPOPROSTENOL
     Dosage: 48.7 NG/KG, PER MIN
     Route: 042
  4. VELETRI [Suspect]
     Active Substance: EPOPROSTENOL
     Dosage: 20.2 NG/KG, PER MIN
     Route: 042
  5. OPSUMIT [Concomitant]
     Active Substance: MACITENTAN
  6. VELETRI [Suspect]
     Active Substance: EPOPROSTENOL
     Dosage: 3 NG/KG, PER MIN
     Route: 042
     Dates: start: 20171006
  7. ADCIRCA [Concomitant]
     Active Substance: TADALAFIL
  8. VELETRI [Suspect]
     Active Substance: EPOPROSTENOL
     Dosage: 23 NG/KG, PER MIN
     Route: 042

REACTIONS (12)
  - Hospitalisation [Unknown]
  - Influenza [Unknown]
  - Abdominal distension [Unknown]
  - Diarrhoea [Not Recovered/Not Resolved]
  - Headache [Unknown]
  - Adverse event [Unknown]
  - Influenza like illness [Recovered/Resolved]
  - Vomiting [Recovered/Resolved]
  - Pneumonia [Unknown]
  - Nausea [Unknown]
  - Anxiety [Unknown]
  - Upper respiratory tract infection [Unknown]

NARRATIVE: CASE EVENT DATE: 20190606
